FAERS Safety Report 6945188-3 (Version None)
Quarter: 2010Q3

REPORT INFORMATION
  Report Type: 
  Country: None (occurrence: None)
  Receive Date: 20100827
  Receipt Date: 20100818
  Transmission Date: 20110219
  Serious: Yes (Hospitalization)
  Sender: FDA-Public Use
  Company Number: GR-JNJFOC-20100807325

PATIENT
  Age: 76 Year
  Sex: Male

DRUGS (3)
  1. REMICADE [Suspect]
     Indication: COLITIS ULCERATIVE
     Dosage: FIRST DOSE ON UNSPECIFIED DATE
     Route: 042
  2. METHYLPREDNISOLONE [Concomitant]
  3. FOLIC ACID [Concomitant]

REACTIONS (1)
  - LISTERIOSIS [None]
